FAERS Safety Report 6062569-3 (Version None)
Quarter: 2009Q1

REPORT INFORMATION
  Report Type: 
  Country: None (occurrence: None)
  Receive Date: 20090129
  Receipt Date: 20090114
  Transmission Date: 20090719
  Serious: Yes (Hospitalization)
  Sender: FDA-Public Use
  Company Number: US025355

PATIENT
  Age: 64 Year
  Sex: Female
  Weight: 75 kg

DRUGS (2)
  1. RIBOMUSTIN [Suspect]
     Indication: CHRONIC LYMPHOCYTIC LEUKAEMIA
     Dosage: 150 MG QD; INTRAVENOUS
     Route: 042
     Dates: start: 20081210, end: 20081211
  2. RITUXIMAB [Suspect]
     Indication: CHRONIC LYMPHOCYTIC LEUKAEMIA
     Dosage: 640 MG; INTRAVENOUS
     Route: 042
     Dates: start: 20081208, end: 20081209

REACTIONS (2)
  - CONDITION AGGRAVATED [None]
  - DIVERTICULITIS [None]
